FAERS Safety Report 6596079-1 (Version None)
Quarter: 2010Q1

REPORT INFORMATION
  Report Type: 
  Country: None (occurrence: None)
  Receive Date: 20100204
  Receipt Date: 20091202
  Transmission Date: 20100710
  Serious: No
  Sender: FDA-Public Use
  Company Number: 2009-10429

PATIENT
  Age: 70 Year
  Sex: Male

DRUGS (1)
  1. RAPAFLO [Suspect]
     Indication: URINE FLOW DECREASED
     Dosage: ORAL
     Route: 048

REACTIONS (1)
  - NOCTURIA [None]
